FAERS Safety Report 5542810-3 (Version None)
Quarter: 2007Q4

REPORT INFORMATION
  Report Type: 
  Country: None (occurrence: None)
  Receive Date: 20071123
  Receipt Date: 20070211
  Transmission Date: 20080405
  Serious: Yes (Other)
  Sender: FDA-Public Use
  Company Number: US-JNJFOC-20070202965

PATIENT
  Age: 59 Year
  Sex: Male

DRUGS (2)
  1. LEVAQUIN [Suspect]
     Indication: NEPHROLITHIASIS
     Dosage: 500 MG, 1 IN 1 DAY, ORAL
     Route: 048
     Dates: start: 20070201, end: 20070211
  2. LEVAQUIN [Suspect]
     Indication: PROSTATITIS
     Dosage: 500 MG, 1 IN 1 DAY, ORAL
     Route: 048
     Dates: start: 20070201, end: 20070211

REACTIONS (1)
  - COGNITIVE DISORDER [None]
